FAERS Safety Report 10876902 (Version 2)
Quarter: 2015Q1

REPORT INFORMATION
  Report Type: Spontaneous
  Country: FR (occurrence: FR)
  Receive Date: 20150302
  Receipt Date: 20150309
  Transmission Date: 20150721
  Serious: Yes (Hospitalization)
  Sender: FDA-Public Use
  Company Number: FR-PFIZER INC-2015071086

PATIENT
  Age: 56 Year
  Sex: Female

DRUGS (11)
  1. CORDARONE [Interacting]
     Active Substance: AMIODARONE HYDROCHLORIDE
     Dosage: 800 MG, UNK
     Route: 048
     Dates: start: 20150105, end: 20150105
  2. CORDARONE [Suspect]
     Active Substance: AMIODARONE HYDROCHLORIDE
     Indication: CARDIOVERSION
     Dosage: 400 MG, UNK
     Route: 048
     Dates: start: 20150103, end: 20150103
  3. CORDARONE [Interacting]
     Active Substance: AMIODARONE HYDROCHLORIDE
     Dosage: 1600 MG, UNK
     Route: 048
     Dates: start: 20150104, end: 20150104
  4. CORDARONE [Interacting]
     Active Substance: AMIODARONE HYDROCHLORIDE
     Dosage: 1 TABLET PER DAY 5 IN DAYS FROM MONDAY TO FRIDAY
     Route: 048
     Dates: start: 20150106
  5. CORTANCYL [Concomitant]
     Active Substance: PREDNISONE
     Dosage: UNK
  6. INEXIUM [Concomitant]
     Active Substance: ESOMEPRAZOLE
     Dosage: UNK
  7. ELISOR [Concomitant]
     Active Substance: PRAVASTATIN SODIUM
     Dosage: UNK
  8. NEORAL [Interacting]
     Active Substance: CYCLOSPORINE
     Indication: PROPHYLAXIS AGAINST TRANSPLANT REJECTION
     Dosage: 50 MG, 2X/DAY
     Route: 048
     Dates: start: 200908
  9. TERCIAN [Concomitant]
     Active Substance: CYAMEMAZINE
     Dosage: UNK
  10. TENORMIN [Concomitant]
     Active Substance: ATENOLOL
     Dosage: UNK
  11. ZYLORIC [Concomitant]
     Active Substance: ALLOPURINOL
     Dosage: UNK

REACTIONS (2)
  - Diarrhoea [Recovered/Resolved]
  - Drug interaction [Unknown]

NARRATIVE: CASE EVENT DATE: 20150111
